FAERS Safety Report 8112614-6 (Version None)
Quarter: 2012Q1

REPORT INFORMATION
  Report Type: 
  Country: None (occurrence: None)
  Receive Date: 20120203
  Receipt Date: 20120123
  Transmission Date: 20120608
  Serious: Yes (Other)
  Sender: FDA-Public Use
  Company Number: GB-ROCHE-1033360

PATIENT

DRUGS (1)
  1. MABTHERA [Suspect]
     Indication: RHEUMATOID ARTHRITIS
     Route: 042

REACTIONS (7)
  - FALL [None]
  - MYOCARDIAL INFARCTION [None]
  - RHEUMATOID ARTHRITIS [None]
  - PNEUMONIA [None]
  - INFECTION [None]
  - OSTEOARTHRITIS [None]
  - LOWER RESPIRATORY TRACT INFECTION [None]
